FAERS Safety Report 7413478-6 (Version None)
Quarter: 2011Q2

REPORT INFORMATION
  Report Type: 
  Country: None (occurrence: None)
  Receive Date: 20110413
  Receipt Date: 20110404
  Transmission Date: 20111010
  Serious: Yes (Hospitalization, Other)
  Sender: FDA-Public Use
  Company Number: PHHO2011NL02695

PATIENT
  Sex: Male
  Weight: 84 kg

DRUGS (9)
  1. MYFORTIC [Suspect]
     Dosage: 360 MG, BID
     Route: 048
     Dates: start: 20110209, end: 20110211
  2. COTRIM [Suspect]
     Indication: PROPHYLAXIS
     Dosage: 900 MG, QD
     Dates: start: 20101127, end: 20110126
  3. STEROIDS NOS [Concomitant]
     Dosage: 10 MG, QD
     Dates: start: 20101124
  4. CERTICAN [Suspect]
     Indication: RENAL TRANSPLANT
     Dosage: 1.5 MG, BID
     Route: 048
     Dates: start: 20110202
  5. VALGANCICLOVIR [Suspect]
     Indication: PROPHYLAXIS
     Dosage: 480 MG, QD
     Dates: start: 20100128, end: 20110126
  6. MYFORTIC [Suspect]
     Indication: RENAL TRANSPLANT
     Dosage: 720 MG, BID
     Route: 048
     Dates: start: 20101212, end: 20110209
  7. MYFORTIC [Suspect]
     Dosage: UNK
     Route: 048
     Dates: start: 20110220
  8. ZANTAC [Suspect]
     Indication: PROPHYLAXIS
     Dosage: 150 MG, QD
     Dates: start: 20101124, end: 20110126
  9. STEROIDS NOS [Concomitant]
     Dosage: 20 MG, QD

REACTIONS (3)
  - LEUKOPENIA [None]
  - MOUTH ULCERATION [None]
  - PYREXIA [None]
